FAERS Safety Report 9812579 (Version 1)
Quarter: 2014Q1

REPORT INFORMATION
  Report Type: Spontaneous
  Country: IT (occurrence: IT)
  Receive Date: 20140113
  Receipt Date: 20140113
  Transmission Date: 20141002
  Serious: Yes (Hospitalization, Other)
  Sender: FDA-Public Use
  Company Number: IT-SUN PHARMACEUTICAL INDUSTRIES LTD-2014SUN00014

PATIENT
  Age: 63 Year
  Sex: Female

DRUGS (6)
  1. OLANZAPINA SUN 10 MG COMPRESSA [Suspect]
     Indication: DEPRESSION
     Dosage: UNK, BID
     Route: 065
  2. OLANZAPINA SUN 10 MG COMPRESSA [Suspect]
     Dosage: 10 MG, OD EVERY EVENING
     Route: 065
  3. ARIPIPRAZOLE [Interacting]
     Indication: DEPRESSION
     Dosage: 5 MG, OD
     Route: 065
  4. TRIAZOLAM [Concomitant]
     Indication: DEPRESSION
     Dosage: 0.25 MG, OD, 1 CP EVERY NIGHT
     Route: 065
  5. ALPRAZOLAM [Concomitant]
     Indication: DEPRESSION
     Dosage: 0.25 MG, OD EVERY MORNING
     Route: 065
  6. PAROXETINA [Concomitant]
     Indication: DEPRESSION
     Dosage: 20 MG, OD, HALF CUP AFTER LUNCH
     Route: 065

REACTIONS (2)
  - Drug interaction [Recovered/Resolved]
  - Neuroleptic malignant syndrome [Recovered/Resolved]
